FAERS Safety Report 15797949 (Version 1)
Quarter: 2019Q1

REPORT INFORMATION
  Report Type: Spontaneous
  Country: US (occurrence: US)
  Receive Date: 20190103
  Receipt Date: 20190103
  Transmission Date: 20190417
  Serious: No
  Sender: FDA-Public Use
  Company Number: None

PATIENT

DRUGS (2)
  1. DOPAMINE HCL DOPAMINE [Suspect]
     Active Substance: DOPAMINE HYDROCHLORIDE
     Dosage: 800 MG/250ML IV BAG INJECTION
     Route: 042
  2. DOPAMINE HCL DOPAMINE [Suspect]
     Active Substance: DOPAMINE HYDROCHLORIDE
     Dosage: ?          OTHER DOSE:200MG PER 250ML;OTHER ROUTE:INJECTION IV  BAG?
     Route: 042

REACTIONS (5)
  - Product label confusion [None]
  - Product packaging confusion [None]
  - Wrong product stored [None]
  - Accidental underdose [None]
  - Product dispensing error [None]
